FAERS Safety Report 4298117-8 (Version None)
Quarter: 2004Q1

REPORT INFORMATION
  Report Type: 
  Country: None (occurrence: None)
  Receive Date: 20040218
  Receipt Date: 20030121
  Transmission Date: 20041129
  Serious: No
  Sender: FDA-Public Use
  Company Number: US-BRISTOL-MYERS SQUIBB COMPANY-12164240

PATIENT
  Sex: Female

DRUGS (1)
  1. STADOL [Suspect]
     Indication: MIGRAINE
     Route: 045

REACTIONS (1)
  - ARTHRALGIA [None]
